FAERS Safety Report 9718921 (Version 1)
Quarter: 2013Q4

REPORT INFORMATION
  Report Type: Report from Study
  Country: JP (occurrence: JP)
  Receive Date: 20131127
  Receipt Date: 20131127
  Transmission Date: 20140711
  Serious: Yes (Hospitalization)
  Sender: FDA-Public Use
  Company Number: JP-TAKEDA-2013TJP003135

PATIENT
  Sex: Female
  Weight: 158 kg

DRUGS (9)
  1. LANSOPRAZOLE [Suspect]
     Indication: PROPHYLAXIS AGAINST GASTROINTESTINAL ULCER
     Dosage: 15 MG, QD
     Route: 048
     Dates: start: 20101210, end: 20130501
  2. ECARD COMBINATION [Concomitant]
     Dosage: 1 DF, QD
     Route: 048
     Dates: start: 20101210
  3. BAYASPIRIN [Concomitant]
     Indication: THROMBOSIS PROPHYLAXIS
     Dosage: 100 MG, 1 DAYS
     Route: 048
     Dates: start: 20101210
  4. SIGMART [Concomitant]
     Dosage: 5 MG, 1 DAYS
     Route: 048
     Dates: start: 20101210
  5. PLAVIX [Concomitant]
     Dosage: 75 MG, 1 DAYS
     Route: 048
     Dates: start: 20101210
  6. NITROPEN [Concomitant]
     Dosage: 0.3 MG, 1 DAYS
     Route: 048
     Dates: start: 20101210
  7. RYTHMODAN                          /00271802/ [Concomitant]
     Dosage: 300 MG, 1 DAYS
     Route: 048
     Dates: start: 20101210
  8. EPADEL-S [Concomitant]
     Indication: DYSLIPIDAEMIA
     Dosage: 1800 MG, 1 DAYS
     Route: 048
     Dates: start: 20101210
  9. NORVASC [Concomitant]
     Dosage: 5 MG, 1 DAYS
     Route: 048
     Dates: start: 20101210

REACTIONS (2)
  - Spinal osteoarthritis [Unknown]
  - Condition aggravated [Unknown]
